FAERS Safety Report 11358761 (Version 1)
Quarter: 2015Q3

REPORT INFORMATION
  Report Type: Spontaneous
  Country: US (occurrence: None)
  Receive Date: 20150806
  Receipt Date: 20150806
  Transmission Date: 20151125
  Serious: Yes (Other)
  Sender: FDA-Public Use
  Company Number: 116491

PATIENT
  Age: 28 Year
  Sex: Female
  Weight: 58.97 kg

DRUGS (1)
  1. EQUATE CAMPHOR 4.7%, EUCALYPTUS OIL 1.2%, MENTHOL12.6% [Suspect]
     Active Substance: CAMPHOR OIL\EUCALYPTUS OIL\MENTHOL
     Indication: COUGH
     Dosage: 2 TO 3X DAY
     Dates: start: 20150624

REACTIONS (3)
  - Application site erythema [None]
  - Skin burning sensation [None]
  - Application site discolouration [None]

NARRATIVE: CASE EVENT DATE: 20150624
